FAERS Safety Report 17021407 (Version 16)
Quarter: 2021Q2

REPORT INFORMATION
  Report Type: Spontaneous
  Country: US (occurrence: US)
  Receive Date: 20191112
  Receipt Date: 20210618
  Transmission Date: 20210716
  Serious: Yes (Other)
  Sender: FDA-Public Use
  Company Number: US-PFIZER INC-2019480943

PATIENT
  Age: 74 Year
  Sex: Male
  Weight: 75 kg

DRUGS (20)
  1. INSPRA [Suspect]
     Active Substance: EPLERENONE
     Indication: BLOOD PRESSURE ABNORMAL
     Dosage: 50 MG, 2X/DAY
     Route: 048
  2. INSPRA [Suspect]
     Active Substance: EPLERENONE
     Indication: HYPERALDOSTERONISM
     Dosage: 50 MG, 2X/DAY
     Route: 048
     Dates: start: 201912
  3. CARVEDILOL. [Concomitant]
     Active Substance: CARVEDILOL
     Dosage: UNK
  4. LASIX [Concomitant]
     Active Substance: FUROSEMIDE
     Dosage: UNK
  5. VELTASSA [Concomitant]
     Active Substance: PATIROMER
     Dosage: UNK
  6. INSPRA [Suspect]
     Active Substance: EPLERENONE
     Indication: SECONDARY HYPERTENSION
     Dosage: 50 MG, 1X/DAY
     Route: 048
  7. METFORMIN [Concomitant]
     Active Substance: METFORMIN HYDROCHLORIDE
     Indication: BLOOD GLUCOSE ABNORMAL
     Dosage: UNK
  8. LAMOTRIGINE. [Concomitant]
     Active Substance: LAMOTRIGINE
     Dosage: UNK
  9. INSPRA [Suspect]
     Active Substance: EPLERENONE
     Indication: BLOOD POTASSIUM ABNORMAL
  10. INSPRA [Suspect]
     Active Substance: EPLERENONE
     Indication: ENDOCRINE HYPERTENSION
  11. AMLODIPINE [Concomitant]
     Active Substance: AMLODIPINE BESYLATE
     Indication: HYPERTENSION
     Dosage: 5 MG, 2X/DAY (10 MG A DAY)
  12. INSPRA [Suspect]
     Active Substance: EPLERENONE
     Indication: ADRENOMEGALY
     Dosage: 25 MG, 2X/DAY
     Route: 048
  13. INSPRA [Suspect]
     Active Substance: EPLERENONE
     Indication: HYPERALDOSTERONISM
  14. BACLOFEN. [Concomitant]
     Active Substance: BACLOFEN
     Dosage: UNK
  15. ISOSORBIDE MONONITRATE. [Concomitant]
     Active Substance: ISOSORBIDE MONONITRATE
     Dosage: UNK
  16. PATIROMER [Concomitant]
     Active Substance: PATIROMER
     Indication: BLOOD POTASSIUM INCREASED
     Dosage: UNK (16.8 G/DL)
  17. ROSUVASTATIN. [Concomitant]
     Active Substance: ROSUVASTATIN
     Indication: BLOOD CHOLESTEROL
     Dosage: UNK
  18. GABAPENTIN. [Concomitant]
     Active Substance: GABAPENTIN
     Indication: NEURALGIA
     Dosage: UNK
  19. INSPRA [Suspect]
     Active Substance: EPLERENONE
     Indication: HYPERTENSION
     Dosage: 75 MG, 2X/DAY
     Dates: start: 20201102
  20. DOXAZOSIN [Concomitant]
     Active Substance: DOXAZOSIN MESYLATE
     Indication: HYPERTENSION
     Dosage: 1 MG, 2X/DAY

REACTIONS (13)
  - Wrong technique in product usage process [Unknown]
  - Hyperkalaemia [Recovered/Resolved]
  - Orthostatic hypotension [Unknown]
  - Feeling abnormal [Unknown]
  - Blood pressure systolic decreased [Recovered/Resolved]
  - Illness [Unknown]
  - Urinary tract infection [Unknown]
  - Off label use [Unknown]
  - Bladder cancer [Unknown]
  - Hypotension [Recovered/Resolved]
  - Dizziness [Unknown]
  - Hypertension [Recovering/Resolving]
  - Body height decreased [Unknown]
